FAERS Safety Report 6545867-6 (Version None)
Quarter: 2010Q1

REPORT INFORMATION
  Report Type: 
  Country: None (occurrence: None)
  Receive Date: 20100121
  Receipt Date: 20090115
  Transmission Date: 20100710
  Serious: No
  Sender: FDA-Public Use
  Company Number: US-ALLERGAN-0900502US

PATIENT
  Age: 41 Year
  Sex: Female

DRUGS (4)
  1. TAZORAC [Suspect]
     Indication: ACNE
     Dosage: UNK, BID
     Route: 061
     Dates: start: 20080101, end: 20080101
  2. TAZORAC [Suspect]
     Dosage: UNK, QOD
     Route: 061
     Dates: start: 20080101
  3. SYNTHROID [Concomitant]
     Dosage: 0.25 MG, QD
  4. CYMBALTA [Concomitant]
     Dosage: 60 MG, QD

REACTIONS (1)
  - HORMONE LEVEL ABNORMAL [None]
